FAERS Safety Report 4451577-1 (Version None)
Quarter: 2004Q3

REPORT INFORMATION
  Report Type: 
  Country: None (occurrence: None)
  Receive Date: 20040915
  Receipt Date: 20040909
  Transmission Date: 20050211
  Serious: Yes (Death)
  Sender: FDA-Public Use
  Company Number: KII-2000-0001516

PATIENT
  Sex: Male

DRUGS (1)
  1. MORPHINE SULFATE [Suspect]

REACTIONS (2)
  - INADEQUATE ANALGESIA [None]
  - MULTI-ORGAN FAILURE [None]
